FAERS Safety Report 14929872 (Version 3)
Quarter: 2018Q4

REPORT INFORMATION
  Report Type: Spontaneous
  Country: US (occurrence: US)
  Receive Date: 20180523
  Receipt Date: 20181121
  Transmission Date: 20190204
  Serious: Yes (Other)
  Sender: FDA-Public Use
  Company Number: US-ASTRAZENECA-2018SE64044

PATIENT
  Age: 18815 Day
  Sex: Female

DRUGS (148)
  1. NEXIUM [Suspect]
     Active Substance: ESOMEPRAZOLE MAGNESIUM
     Indication: GASTROOESOPHAGEAL REFLUX DISEASE
     Route: 048
     Dates: start: 2001, end: 2017
  2. NEXIUM [Suspect]
     Active Substance: ESOMEPRAZOLE MAGNESIUM
     Indication: GASTROOESOPHAGEAL REFLUX DISEASE
     Route: 048
     Dates: start: 20070514
  3. NEXIUM [Suspect]
     Active Substance: ESOMEPRAZOLE MAGNESIUM
     Indication: GASTROOESOPHAGEAL REFLUX DISEASE
     Route: 048
     Dates: start: 20120117
  4. NEXIUM [Suspect]
     Active Substance: ESOMEPRAZOLE MAGNESIUM
     Indication: GASTROOESOPHAGEAL REFLUX DISEASE
     Route: 048
     Dates: start: 20120801
  5. NEXIUM [Suspect]
     Active Substance: ESOMEPRAZOLE MAGNESIUM
     Indication: GASTROOESOPHAGEAL REFLUX DISEASE
     Route: 048
     Dates: start: 20150914
  6. PRILOSEC [Suspect]
     Active Substance: OMEPRAZOLE MAGNESIUM
     Indication: GASTROOESOPHAGEAL REFLUX DISEASE
     Route: 048
     Dates: start: 200108, end: 200112
  7. AMITRIPTYLINE [Concomitant]
     Active Substance: AMITRIPTYLINE
     Indication: DEPRESSION
     Dates: start: 200607
  8. GENTAMICIN CREAM [Concomitant]
     Active Substance: GENTAMICIN
     Dates: start: 200611
  9. PIROXICAM. [Concomitant]
     Active Substance: PIROXICAM
     Indication: ANALGESIC THERAPY
     Dates: start: 200602
  10. ULTRAM [Concomitant]
     Active Substance: TRAMADOL HYDROCHLORIDE
     Indication: ANALGESIC THERAPY
     Dates: start: 200108
  11. CYMBALTA [Concomitant]
     Active Substance: DULOXETINE HYDROCHLORIDE
     Indication: IRRITABLE BOWEL SYNDROME
     Dates: start: 201506, end: 201507
  12. DICYCLOMINE [Concomitant]
     Active Substance: DICYCLOMINE HYDROCHLORIDE
     Indication: ANALGESIC THERAPY
     Dates: start: 201603
  13. DOCQLACE [Concomitant]
     Active Substance: DOCUSATE SODIUM
     Indication: LAXATIVE SUPPORTIVE CARE
     Dates: start: 201107
  14. HYDROCODONE [Concomitant]
     Active Substance: HYDROCODONE
     Indication: ARTHRITIS
     Dates: start: 201102
  15. HYDROCODONE [Concomitant]
     Active Substance: HYDROCODONE
     Indication: ARTHRITIS
     Dates: start: 201112
  16. ISOSORBIDE MONONITRATE. [Concomitant]
     Active Substance: ISOSORBIDE MONONITRATE
     Indication: CORONARY ARTERY DISEASE
     Dates: start: 200301
  17. ONDASETRON HCL [Concomitant]
     Active Substance: ONDANSETRON HYDROCHLORIDE
     Indication: NAUSEA
     Dates: start: 201610
  18. POTASSIUM CHLORIDE. [Concomitant]
     Active Substance: POTASSIUM CHLORIDE
     Indication: HYPERTENSION
     Dates: start: 201311
  19. PROMETHAZINE [Concomitant]
     Active Substance: PROMETHAZINE\PROMETHAZINE HYDROCHLORIDE
     Indication: NAUSEA
     Dates: start: 201610
  20. PROPOXYPEHN-APAP [Concomitant]
     Dates: start: 200512, end: 200704
  21. RHINOCORT AQUA [Concomitant]
     Active Substance: BUDESONIDE
     Indication: SEASONAL ALLERGY
     Dates: start: 200603
  22. TEMAZEPAM. [Concomitant]
     Active Substance: TEMAZEPAM
     Indication: INSOMNIA
     Dates: start: 201106, end: 201112
  23. TIZANIDINE HYDROCHLORIDE. [Concomitant]
     Active Substance: TIZANIDINE HYDROCHLORIDE
     Indication: MUSCLE RELAXANT THERAPY
     Dates: start: 201608
  24. TRAZODONE [Concomitant]
     Active Substance: TRAZODONE HYDROCHLORIDE
     Indication: INSOMNIA
     Dates: start: 201110
  25. NEXIUM [Suspect]
     Active Substance: ESOMEPRAZOLE MAGNESIUM
     Indication: GASTROOESOPHAGEAL REFLUX DISEASE
     Route: 048
     Dates: start: 20110606
  26. NEXIUM [Suspect]
     Active Substance: ESOMEPRAZOLE MAGNESIUM
     Indication: GASTROOESOPHAGEAL REFLUX DISEASE
     Route: 048
     Dates: start: 20120501
  27. NEXIUM [Suspect]
     Active Substance: ESOMEPRAZOLE MAGNESIUM
     Indication: GASTROOESOPHAGEAL REFLUX DISEASE
     Route: 048
     Dates: start: 20120604
  28. NEXIUM [Suspect]
     Active Substance: ESOMEPRAZOLE MAGNESIUM
     Indication: GASTROOESOPHAGEAL REFLUX DISEASE
     Route: 048
     Dates: start: 20121205
  29. PRILOSEC [Suspect]
     Active Substance: OMEPRAZOLE MAGNESIUM
     Indication: GASTROOESOPHAGEAL REFLUX DISEASE
     Dosage: GENERIC
     Route: 048
     Dates: start: 2001, end: 2017
  30. PRILOSEC [Suspect]
     Active Substance: OMEPRAZOLE MAGNESIUM
     Indication: GASTROOESOPHAGEAL REFLUX DISEASE
     Route: 048
     Dates: start: 200202
  31. PROTONIX [Suspect]
     Active Substance: PANTOPRAZOLE SODIUM
     Indication: GASTROOESOPHAGEAL REFLUX DISEASE
     Route: 048
     Dates: start: 200602, end: 200607
  32. PROTONIX [Suspect]
     Active Substance: PANTOPRAZOLE SODIUM
     Indication: GASTROOESOPHAGEAL REFLUX DISEASE
     Route: 048
     Dates: start: 201701
  33. ZOCOR [Concomitant]
     Active Substance: SIMVASTATIN
     Indication: HYPERLIPIDAEMIA
     Dates: start: 200603, end: 200704
  34. AMLODIPINE BESYLATE. [Concomitant]
     Active Substance: AMLODIPINE BESYLATE
     Indication: HYPERTENSION
     Dates: start: 201803
  35. ASPIRIN EC [Concomitant]
     Active Substance: ASPIRIN
     Indication: ADJUVANT THERAPY
     Dates: start: 201011
  36. HYDROCODONE-ACETAMINOPHEN [Concomitant]
     Active Substance: ACETAMINOPHEN\HYDROCODONE
     Indication: ARTHRITIS
     Dates: start: 201003
  37. HYDROCODONE [Concomitant]
     Active Substance: HYDROCODONE
     Indication: ARTHRITIS
     Dates: start: 200704
  38. KLOR-CON [Concomitant]
     Active Substance: POTASSIUM CHLORIDE
     Indication: MINERAL SUPPLEMENTATION
     Dates: start: 201211
  39. MEDROXYPROGESTERONE [Concomitant]
     Active Substance: MEDROXYPROGESTERONE
     Indication: SUPPLEMENTATION THERAPY
     Dates: start: 200512
  40. METHADONE HYDROCHLORIDE. [Concomitant]
     Active Substance: METHADONE HYDROCHLORIDE
     Indication: ANALGESIC THERAPY
     Dates: start: 201604
  41. METRONIDAZOLE. [Concomitant]
     Active Substance: METRONIDAZOLE
     Dates: start: 201604
  42. NITROGLYCERIN. [Concomitant]
     Active Substance: NITROGLYCERIN
     Indication: CORONARY ARTERY DISEASE
     Dates: start: 201008
  43. TEQUIN [Concomitant]
     Active Substance: GATIFLOXACIN
     Dates: start: 200611
  44. VITAMIN C [Concomitant]
     Active Substance: ASCORBIC ACID
     Indication: VITAMIN SUPPLEMENTATION
     Dates: start: 201110, end: 201301
  45. VITAMIN D2 [Concomitant]
     Active Substance: ERGOCALCIFEROL
     Indication: VITAMIN SUPPLEMENTATION
     Dates: start: 201004, end: 201005
  46. ZANTAC [Concomitant]
     Active Substance: RANITIDINE HYDROCHLORIDE
     Dates: start: 201011, end: 201012
  47. NEXIUM [Suspect]
     Active Substance: ESOMEPRAZOLE MAGNESIUM
     Indication: GASTROOESOPHAGEAL REFLUX DISEASE
     Route: 048
     Dates: start: 20110202
  48. NEXIUM [Suspect]
     Active Substance: ESOMEPRAZOLE MAGNESIUM
     Indication: GASTROOESOPHAGEAL REFLUX DISEASE
     Route: 048
     Dates: start: 201111
  49. NEXIUM [Suspect]
     Active Substance: ESOMEPRAZOLE MAGNESIUM
     Indication: GASTROOESOPHAGEAL REFLUX DISEASE
     Route: 048
     Dates: start: 20160105
  50. AMITRIPTYLINE [Concomitant]
     Active Substance: AMITRIPTYLINE
     Indication: DEPRESSION
     Dates: start: 201005, end: 201010
  51. DICLOFENAC SODIUM. [Concomitant]
     Active Substance: DICLOFENAC SODIUM
     Indication: ANALGESIC THERAPY
     Dates: start: 200901
  52. PIROXICAM. [Concomitant]
     Active Substance: PIROXICAM
     Indication: ANALGESIC THERAPY
     Dates: start: 200704
  53. PLAVIX [Concomitant]
     Active Substance: CLOPIDOGREL BISULFATE
     Indication: CORONARY ARTERY DISEASE
     Dates: start: 201007, end: 201301
  54. BACTROBAN [Concomitant]
     Active Substance: MUPIROCIN\MUPIROCIN CALCIUM
     Dates: start: 201109, end: 201206
  55. FERROUS SULFATE. [Concomitant]
     Active Substance: FERROUS SULFATE
     Indication: MINERAL SUPPLEMENTATION
     Dates: start: 200512, end: 200608
  56. ISOSORBIDE MONONITRATE. [Concomitant]
     Active Substance: ISOSORBIDE MONONITRATE
     Indication: CORONARY ARTERY DISEASE
     Dates: start: 201112, end: 201610
  57. METRONIDAZOLE. [Concomitant]
     Active Substance: METRONIDAZOLE
     Dates: start: 201710, end: 201711
  58. MORPHINE SULFATE. [Concomitant]
     Active Substance: MORPHINE SULFATE
     Dates: start: 201509, end: 201610
  59. MULTIVITAMIN [Concomitant]
     Active Substance: VITAMINS
     Indication: VITAMIN SUPPLEMENTATION
     Dates: start: 2015
  60. NITROSTAT [Concomitant]
     Active Substance: NITROGLYCERIN
     Indication: CORONARY ARTERY DISEASE
     Dates: start: 201011, end: 201311
  61. PROMETHAZINE [Concomitant]
     Active Substance: PROMETHAZINE\PROMETHAZINE HYDROCHLORIDE
     Indication: NAUSEA
     Dates: start: 200704
  62. NEXIUM [Suspect]
     Active Substance: ESOMEPRAZOLE MAGNESIUM
     Indication: GASTROOESOPHAGEAL REFLUX DISEASE
     Route: 048
     Dates: start: 20060909, end: 200706
  63. NEXIUM [Suspect]
     Active Substance: ESOMEPRAZOLE MAGNESIUM
     Indication: GASTROOESOPHAGEAL REFLUX DISEASE
     Route: 048
     Dates: start: 20121003
  64. NEXIUM [Suspect]
     Active Substance: ESOMEPRAZOLE MAGNESIUM
     Indication: GASTROOESOPHAGEAL REFLUX DISEASE
     Route: 048
     Dates: start: 20160105
  65. NEXIUM [Suspect]
     Active Substance: ESOMEPRAZOLE MAGNESIUM
     Indication: GASTROOESOPHAGEAL REFLUX DISEASE
     Route: 048
     Dates: start: 20160105
  66. PRILOSEC [Suspect]
     Active Substance: OMEPRAZOLE MAGNESIUM
     Indication: GASTROOESOPHAGEAL REFLUX DISEASE
     Route: 048
     Dates: start: 201701, end: 201705
  67. PROTONIX [Suspect]
     Active Substance: PANTOPRAZOLE SODIUM
     Indication: GASTROOESOPHAGEAL REFLUX DISEASE
     Dosage: GENERIC
     Route: 065
     Dates: start: 201701
  68. DEXILANT [Suspect]
     Active Substance: DEXLANSOPRAZOLE
     Route: 065
     Dates: start: 201007, end: 201010
  69. CELEBREX [Concomitant]
     Active Substance: CELECOXIB
     Indication: ANALGESIC THERAPY
     Dates: start: 200108, end: 200202
  70. CLOPIDOGREL BISULFATE. [Concomitant]
     Active Substance: CLOPIDOGREL BISULFATE
     Indication: CORONARY ARTERY DISEASE
     Dates: start: 201503
  71. DICLOFENAC SODIUM. [Concomitant]
     Active Substance: DICLOFENAC SODIUM
     Indication: ANALGESIC THERAPY
     Dates: start: 201102, end: 201103
  72. HCTZ [Concomitant]
     Active Substance: HYDROCHLOROTHIAZIDE
     Indication: HYPERTENSION
     Dates: start: 200512, end: 200706
  73. CARVEDILOL. [Concomitant]
     Active Substance: CARVEDILOL
     Indication: HYPERTENSION
     Dates: start: 201301
  74. DICYCLOMINE [Concomitant]
     Active Substance: DICYCLOMINE HYDROCHLORIDE
     Indication: ANALGESIC THERAPY
     Dates: start: 201609, end: 201610
  75. DOK [Concomitant]
     Active Substance: DOCUSATE SODIUM
     Indication: CONSTIPATION
     Dates: start: 201109, end: 201110
  76. FLUVOXAMINE MALEATE. [Concomitant]
     Active Substance: FLUVOXAMINE MALEATE
     Indication: DEPRESSION
  77. HYDROCODONE-ACETAMINOPHEN [Concomitant]
     Active Substance: ACETAMINOPHEN\HYDROCODONE
     Indication: ARTHRITIS
     Dates: start: 201009
  78. HYDROCODONE [Concomitant]
     Active Substance: HYDROCODONE
     Indication: ARTHRITIS
     Dates: start: 201011
  79. LIDODERM [Concomitant]
     Active Substance: LIDOCAINE
     Indication: ANALGESIC THERAPY
     Dates: start: 201009
  80. NEURONTIN [Concomitant]
     Active Substance: GABAPENTIN
     Indication: ANALGESIC THERAPY
     Dates: start: 201105
  81. NITROSTAT [Concomitant]
     Active Substance: NITROGLYCERIN
     Indication: CORONARY ARTERY DISEASE
     Dates: start: 201503
  82. NITROSTAT [Concomitant]
     Active Substance: NITROGLYCERIN
     Indication: CORONARY ARTERY DISEASE
     Dates: start: 201601, end: 201610
  83. POTASSIUM CHLORIDE. [Concomitant]
     Active Substance: POTASSIUM CHLORIDE
     Indication: HYPERTENSION
     Dates: start: 201503, end: 201505
  84. PROMETHAZINE [Concomitant]
     Active Substance: PROMETHAZINE\PROMETHAZINE HYDROCHLORIDE
     Indication: NAUSEA
     Dates: start: 201005
  85. RHINOCORT AQUA [Concomitant]
     Active Substance: BUDESONIDE
     Indication: SEASONAL ALLERGY
     Dates: start: 201204
  86. ZANTAC [Concomitant]
     Active Substance: RANITIDINE HYDROCHLORIDE
     Dates: start: 201011
  87. ZANTAC [Concomitant]
     Active Substance: RANITIDINE HYDROCHLORIDE
     Dates: start: 201204
  88. NEXIUM [Suspect]
     Active Substance: ESOMEPRAZOLE MAGNESIUM
     Indication: GASTROOESOPHAGEAL REFLUX DISEASE
     Route: 048
     Dates: start: 20061220
  89. NEXIUM [Suspect]
     Active Substance: ESOMEPRAZOLE MAGNESIUM
     Indication: GASTROOESOPHAGEAL REFLUX DISEASE
     Route: 048
     Dates: start: 20110103
  90. NEXIUM [Suspect]
     Active Substance: ESOMEPRAZOLE MAGNESIUM
     Indication: GASTROOESOPHAGEAL REFLUX DISEASE
     Route: 048
     Dates: start: 20110928
  91. NEXIUM [Suspect]
     Active Substance: ESOMEPRAZOLE MAGNESIUM
     Indication: GASTROOESOPHAGEAL REFLUX DISEASE
     Route: 048
     Dates: start: 20161007
  92. NEXIUM [Suspect]
     Active Substance: ESOMEPRAZOLE MAGNESIUM
     Indication: GASTROOESOPHAGEAL REFLUX DISEASE
     Route: 048
     Dates: start: 20151008
  93. MELOXICAM. [Concomitant]
     Active Substance: MELOXICAM
     Indication: OSTEOARTHRITIS
     Dates: start: 200810, end: 201301
  94. RIFAMPICIN [Concomitant]
     Active Substance: RIFAMPIN
     Dates: start: 200704
  95. ATENOLOL. [Concomitant]
     Active Substance: ATENOLOL
     Indication: HYPERTENSION
     Dates: start: 201311
  96. BUTALBITAL-ACETAMINOPHEN CAFFEINE [Concomitant]
     Indication: MIGRAINE
     Dates: start: 201106, end: 201203
  97. CROMOLYN SODIUM SOLUTION [Concomitant]
     Indication: SEASONAL ALLERGY
     Dates: start: 201504
  98. GABAPENTIN. [Concomitant]
     Active Substance: GABAPENTIN
     Indication: FIBROMYALGIA
     Dates: start: 201005, end: 201610
  99. GUAIFENESIN. [Concomitant]
     Active Substance: GUAIFENESIN
     Indication: ANTITUSSIVE THERAPY
     Dates: start: 200603
  100. SUCRALFATE. [Concomitant]
     Active Substance: SUCRALFATE
     Indication: DYSPEPSIA
     Dates: start: 200605
  101. TRAZODONE [Concomitant]
     Active Substance: TRAZODONE HYDROCHLORIDE
     Indication: INSOMNIA
     Dates: start: 200602, end: 200611
  102. ZANTAC [Concomitant]
     Active Substance: RANITIDINE HYDROCHLORIDE
     Dates: start: 201210
  103. NEXIUM [Suspect]
     Active Substance: ESOMEPRAZOLE MAGNESIUM
     Indication: GASTROOESOPHAGEAL REFLUX DISEASE
     Route: 048
     Dates: start: 20111219
  104. PRILOSEC [Suspect]
     Active Substance: OMEPRAZOLE MAGNESIUM
     Indication: GASTROOESOPHAGEAL REFLUX DISEASE
     Route: 048
     Dates: start: 200908, end: 201006
  105. FLUOXETINE HYDROCHLORIDE. [Concomitant]
     Active Substance: FLUOXETINE HYDROCHLORIDE
     Indication: DEPRESSION
     Dates: start: 200602, end: 201211
  106. BACLOFEN. [Concomitant]
     Active Substance: BACLOFEN
     Indication: MUSCLE RELAXANT THERAPY
     Dates: start: 201510, end: 201606
  107. CYCLOBENZAPRINE. [Concomitant]
     Active Substance: CYCLOBENZAPRINE
     Indication: MUSCLE RELAXANT THERAPY
     Dates: start: 201005, end: 201010
  108. ERY-TAB [Concomitant]
     Active Substance: ERYTHROMYCIN
     Dates: start: 200112
  109. FLUVOXAMINE MALEATE. [Concomitant]
     Active Substance: FLUVOXAMINE MALEATE
     Indication: ANXIETY
  110. LORAZEPAM. [Concomitant]
     Active Substance: LORAZEPAM
     Indication: ANXIETY
     Dates: start: 201010, end: 201103
  111. NABUMETONE. [Concomitant]
     Active Substance: NABUMETONE
     Indication: ANALGESIC THERAPY
     Dates: start: 200603, end: 200604
  112. TERBINAFINE. [Concomitant]
     Active Substance: TERBINAFINE
     Dates: start: 200903
  113. NEXIUM [Suspect]
     Active Substance: ESOMEPRAZOLE MAGNESIUM
     Indication: GASTROOESOPHAGEAL REFLUX DISEASE
     Dosage: GENERIC
     Route: 048
     Dates: start: 20160105
  114. PRILOSEC [Suspect]
     Active Substance: OMEPRAZOLE MAGNESIUM
     Indication: GASTROOESOPHAGEAL REFLUX DISEASE
     Route: 048
     Dates: start: 2001, end: 2017
  115. DEXILANT [Suspect]
     Active Substance: DEXLANSOPRAZOLE
     Route: 065
     Dates: start: 2001, end: 2017
  116. HYDROCHLOROTHIAZIDE. [Concomitant]
     Active Substance: HYDROCHLOROTHIAZIDE
     Indication: HYPERTENSION
     Dates: start: 200610, end: 201311
  117. LISINOPRIL. [Concomitant]
     Active Substance: LISINOPRIL
     Indication: HYPERTENSION
     Dates: start: 200512, end: 201706
  118. ROSUVASTATIN CALCIUM. [Concomitant]
     Active Substance: ROSUVASTATIN CALCIUM
     Indication: HYPERTENSION
     Dates: start: 201610
  119. TRAMADOL HYDROCHLORIDE. [Concomitant]
     Active Substance: TRAMADOL HYDROCHLORIDE
     Indication: ANALGESIC THERAPY
     Dates: start: 201010
  120. ANTIPYRINE-BENZOCAINE [Concomitant]
     Indication: ANALGESIC THERAPY
     Dates: start: 200611
  121. BENZONATATE. [Concomitant]
     Active Substance: BENZONATATE
     Indication: ANTITUSSIVE THERAPY
     Dates: start: 201202, end: 201211
  122. CARISOPRODOL. [Concomitant]
     Active Substance: CARISOPRODOL
     Indication: FIBROMYALGIA
     Dates: start: 201007
  123. CETIRIZINE HYDROCHLORIDE. [Concomitant]
     Active Substance: CETIRIZINE HYDROCHLORIDE
     Indication: SEASONAL ALLERGY
     Dates: start: 201112, end: 201203
  124. KETOTIFEN FUMARATE. [Concomitant]
     Active Substance: KETOTIFEN FUMARATE
     Indication: SEASONAL ALLERGY
     Dates: start: 201504
  125. NITROLINGUAL PUMP SPRAY [Concomitant]
     Indication: CORONARY ARTERY DISEASE
     Dates: start: 201007
  126. OXYCODONE AND ACETAMINOPHEN [Concomitant]
     Active Substance: ACETAMINOPHEN\OXYCODONE HYDROCHLORIDE
  127. QUETIAPINE. [Concomitant]
     Active Substance: QUETIAPINE
     Indication: DEPRESSION
     Dates: start: 201507, end: 201508
  128. TRAZODONE [Concomitant]
     Active Substance: TRAZODONE HYDROCHLORIDE
     Indication: INSOMNIA
     Dates: start: 201201, end: 201212
  129. VYTORIN [Concomitant]
     Active Substance: EZETIMIBE\SIMVASTATIN
     Indication: TYPE V HYPERLIPIDAEMIA
     Dates: start: 201001, end: 201008
  130. NEXIUM [Suspect]
     Active Substance: ESOMEPRAZOLE MAGNESIUM
     Indication: GASTROOESOPHAGEAL REFLUX DISEASE
     Route: 048
     Dates: start: 20101201
  131. NEXIUM [Suspect]
     Active Substance: ESOMEPRAZOLE MAGNESIUM
     Indication: GASTROOESOPHAGEAL REFLUX DISEASE
     Route: 048
     Dates: start: 20110301
  132. NEXIUM [Suspect]
     Active Substance: ESOMEPRAZOLE MAGNESIUM
     Indication: GASTROOESOPHAGEAL REFLUX DISEASE
     Route: 048
     Dates: start: 20101130
  133. DEXILANT [Suspect]
     Active Substance: DEXLANSOPRAZOLE
     Route: 065
     Dates: start: 201804
  134. CRESTOR [Concomitant]
     Active Substance: ROSUVASTATIN CALCIUM
     Indication: HYPERLIPIDAEMIA
     Dates: start: 201011
  135. FUROSEMIDE. [Concomitant]
     Active Substance: FUROSEMIDE
     Indication: CORONARY ARTERY DISEASE
     Dates: start: 201007, end: 201608
  136. NAPROXEN. [Concomitant]
     Active Substance: NAPROXEN
     Indication: ANALGESIC THERAPY
     Dates: start: 201511
  137. SIMVASTATIN. [Concomitant]
     Active Substance: SIMVASTATIN
     Indication: HYPERLIPIDAEMIA
     Dates: start: 200705
  138. SULFAMETHOXAZOLE [Concomitant]
     Active Substance: SULFAMETHOXAZOLE
     Dates: start: 200603, end: 200704
  139. CARVEDILOL. [Concomitant]
     Active Substance: CARVEDILOL
     Indication: HYPERTENSION
     Dates: start: 201007
  140. DULOXETINE HYDROCHLORIDE. [Concomitant]
     Active Substance: DULOXETINE HYDROCHLORIDE
     Indication: IRRITABLE BOWEL SYNDROME
     Dates: start: 201509
  141. FERROUS SULFATE. [Concomitant]
     Active Substance: FERROUS SULFATE
     Indication: MINERAL SUPPLEMENTATION
     Dates: start: 201110, end: 201301
  142. HYDROXYZINE HYDROCHLORIDE. [Concomitant]
     Active Substance: HYDROXYZINE HYDROCHLORIDE
     Indication: SEASONAL ALLERGY
     Dates: start: 200611, end: 200612
  143. HYDROXYZINE HYDROCHLORIDE. [Concomitant]
     Active Substance: HYDROXYZINE HYDROCHLORIDE
     Indication: SEASONAL ALLERGY
     Dates: start: 200704, end: 200706
  144. KLOR-CON [Concomitant]
     Active Substance: POTASSIUM CHLORIDE
     Indication: MINERAL SUPPLEMENTATION
     Dates: start: 200510, end: 201008
  145. LORATADINE. [Concomitant]
     Active Substance: LORATADINE
     Indication: SEASONAL ALLERGY
     Dates: start: 200607, end: 200710
  146. LOTREL [Concomitant]
     Active Substance: AMLODIPINE BESYLATE\BENAZEPRIL HYDROCHLORIDE
     Indication: BLOOD PRESSURE MEASUREMENT
     Dates: start: 200108, end: 200202
  147. METHOCARBAMOL. [Concomitant]
     Active Substance: METHOCARBAMOL
     Indication: MUSCLE RELAXANT THERAPY
     Dates: start: 201610
  148. METRONIDAZOLE. [Concomitant]
     Active Substance: METRONIDAZOLE
     Dates: start: 201610

REACTIONS (3)
  - Chronic kidney disease [Not Recovered/Not Resolved]
  - Renal failure [Unknown]
  - Acute kidney injury [Not Recovered/Not Resolved]

NARRATIVE: CASE EVENT DATE: 20120707
